FAERS Safety Report 13566825 (Version 1)
Quarter: 2017Q2

REPORT INFORMATION
  Report Type: Spontaneous
  Country: US (occurrence: US)
  Receive Date: 20170522
  Receipt Date: 20170522
  Transmission Date: 20170830
  Serious: Yes (Other)
  Sender: FDA-Public Use
  Company Number: US-AMGEN-USASP2017067898

PATIENT
  Age: 80 Year
  Sex: Male

DRUGS (5)
  1. IMLYGIC [Suspect]
     Active Substance: TALIMOGENE LAHERPAREPVEC
     Indication: MALIGNANT MELANOMA STAGE IV
     Dosage: 4 ML (10 X 6 MU), UNK
     Route: 026
     Dates: start: 20170424, end: 20170424
  2. SPIRIVA [Concomitant]
     Active Substance: TIOTROPIUM BROMIDE MONOHYDRATE
     Dosage: 18 MUG, QD
     Dates: start: 20170319
  3. VOLTAREN [Concomitant]
     Active Substance: DICLOFENAC SODIUM
     Indication: PAIN
     Dosage: UNK UNK, TID
     Dates: start: 20170201
  4. BUDESONIDE. [Concomitant]
     Active Substance: BUDESONIDE
     Dosage: 3 DF, QD (3 MG TABLET)
     Dates: start: 20170303
  5. ACITRETIN. [Concomitant]
     Active Substance: ACITRETIN
     Dosage: 25 MG, UNK
     Dates: start: 20170102

REACTIONS (4)
  - Oropharyngeal candidiasis [Unknown]
  - Oropharyngeal pain [Recovered/Resolved]
  - Dysphagia [Recovered/Resolved]
  - Dysphonia [Recovered/Resolved]

NARRATIVE: CASE EVENT DATE: 201704
